FAERS Safety Report 12986540 (Version 6)
Quarter: 2017Q4

REPORT INFORMATION
  Report Type: Spontaneous
  Country: JP (occurrence: JP)
  Receive Date: 20161130
  Receipt Date: 20171004
  Transmission Date: 20180320
  Serious: Yes (Hospitalization, Other)
  Sender: FDA-Public Use
  Company Number: JP-AMGEN-JPNSP2016168722

PATIENT
  Age: 42 Year
  Sex: Female
  Weight: 80 kg

DRUGS (11)
  1. G-LASTA [Suspect]
     Active Substance: PEGFILGRASTIM
     Indication: COLONY STIMULATING FACTOR PROPHYLAXIS
     Dosage: 3.6 MG, QD
     Route: 058
     Dates: start: 20160629, end: 20160629
  2. PERJETA [Concomitant]
     Active Substance: PERTUZUMAB
     Indication: BREAST CANCER RECURRENT
     Dosage: 840 MG, QD
     Route: 041
     Dates: start: 20160627, end: 20160627
  3. DECADRON [Concomitant]
     Active Substance: DEXAMETHASONE
     Dosage: UNK
     Route: 065
  4. G-LASTA [Suspect]
     Active Substance: PEGFILGRASTIM
     Dosage: 3.6 MG, QD
     Route: 058
     Dates: start: 20160907, end: 20160907
  5. PERJETA [Concomitant]
     Active Substance: PERTUZUMAB
     Dosage: 420 MG, 1X/3WEEKS
     Route: 041
     Dates: start: 20160720
  6. HERCEPTIN [Concomitant]
     Active Substance: TRASTUZUMAB
     Indication: BREAST CANCER RECURRENT
     Dosage: 680 MG, QD
     Route: 041
     Dates: start: 20160627, end: 20160627
  7. HERCEPTIN [Concomitant]
     Active Substance: TRASTUZUMAB
     Dosage: 510 MG, 1X/3WEEKS
     Route: 041
     Dates: start: 20160720
  8. ONETAXOTERE [Suspect]
     Active Substance: DOCETAXEL
     Indication: BREAST CANCER RECURRENT
     Dosage: 139.8 MG, 1X/3WEEKS
     Route: 041
     Dates: start: 20160627, end: 20160815
  9. DECADRON [Concomitant]
     Active Substance: DEXAMETHASONE
     Indication: PROPHYLAXIS
     Dosage: 2 MG, BID
     Route: 048
     Dates: start: 20160627
  10. ONETAXOTERE [Suspect]
     Active Substance: DOCETAXEL
     Dosage: 104.85 MG, QD
     Route: 041
     Dates: start: 20160905, end: 20160905
  11. LAC-B [Concomitant]
     Active Substance: BIFIDOBACTERIUM SPP.
     Dosage: UNK
     Route: 048

REACTIONS (11)
  - Decreased appetite [Recovered/Resolved]
  - Duodenal ulcer [Recovering/Resolving]
  - Decreased appetite [Recovered/Resolved]
  - Nausea [Recovered/Resolved]
  - Malaise [Recovered/Resolved]
  - Vomiting [Recovered/Resolved]
  - Nausea [Recovered/Resolved]
  - Nausea [Recovered/Resolved]
  - Malaise [Recovered/Resolved]
  - Decreased appetite [Recovered/Resolved]
  - Perforation [Recovering/Resolving]

NARRATIVE: CASE EVENT DATE: 20160629
